FAERS Safety Report 11748853 (Version 1)
Quarter: 2015Q4

REPORT INFORMATION
  Report Type: Spontaneous
  Country: TW (occurrence: TW)
  Receive Date: 20151118
  Receipt Date: 20151118
  Transmission Date: 20160304
  Serious: Yes (Hospitalization, Other)
  Sender: FDA-Public Use
  Company Number: TW-AMGEN-TWNSP2015121386

PATIENT
  Age: 62 Year
  Sex: Female

DRUGS (1)
  1. ENBREL [Suspect]
     Active Substance: ETANERCEPT
     Indication: RHEUMATOID ARTHRITIS
     Dosage: 25 MG, 2X/WEEK
     Route: 058
     Dates: start: 20111224, end: 20151021

REACTIONS (6)
  - Systemic lupus erythematosus [Unknown]
  - Haematuria [Unknown]
  - Renal pain [Unknown]
  - Oedema [Unknown]
  - Renal function test abnormal [Unknown]
  - Butterfly rash [Unknown]

NARRATIVE: CASE EVENT DATE: 20151023
